FAERS Safety Report 4897392-6 (Version None)
Quarter: 2006Q1

REPORT INFORMATION
  Report Type: 
  Country: None (occurrence: None)
  Receive Date: 20060130
  Receipt Date: 20060130
  Transmission Date: 20060701
  Serious: Yes (Hospitalization)
  Sender: FDA-Public Use
  Company Number: None

PATIENT
  Age: 14 Month
  Sex: Male
  Weight: 9.5255 kg

DRUGS (2)
  1. AMOXICILLIN [Suspect]
     Indication: EAR INFECTION
     Dosage: ONE TEASPOON   TWICE DAILY   PO
     Route: 048
     Dates: start: 20060116, end: 20060121
  2. AMOXICILLIN [Suspect]
     Indication: PHARYNGITIS STREPTOCOCCAL
     Dosage: ONE TEASPOON   TWICE DAILY   PO
     Route: 048
     Dates: start: 20060116, end: 20060121

REACTIONS (1)
  - STEVENS-JOHNSON SYNDROME [None]
